FAERS Safety Report 23595606 (Version 1)
Quarter: 2024Q1

REPORT INFORMATION
  Report Type: Spontaneous
  Country: SE (occurrence: SE)
  Receive Date: 20240305
  Receipt Date: 20240305
  Transmission Date: 20240410
  Serious: Yes (Hospitalization)
  Sender: FDA-Public Use
  Company Number: None

PATIENT
  Age: 96 Year
  Sex: Female

DRUGS (1)
  1. EDOXABAN TOSYLATE [Suspect]
     Active Substance: EDOXABAN TOSYLATE
     Indication: Atrial fibrillation
     Dosage: UNK
     Route: 065
     Dates: end: 20240214

REACTIONS (4)
  - Pyrexia [Unknown]
  - Renal haemorrhage [Unknown]
  - Abdominal pain [Unknown]
  - Haematuria [Unknown]

NARRATIVE: CASE EVENT DATE: 20240214
